FAERS Safety Report 17210454 (Version 3)
Quarter: 2020Q1

REPORT INFORMATION
  Report Type: Spontaneous
  Country: US (occurrence: US)
  Receive Date: 20191227
  Receipt Date: 20200205
  Transmission Date: 20200409
  Serious: Yes (Life-Threatening, Hospitalization, Other)
  Sender: FDA-Public Use
  Company Number: US-JNJFOC-20191240171

PATIENT
  Age: 55 Year
  Sex: Male

DRUGS (2)
  1. MELATONIN [Concomitant]
     Active Substance: MELATONIN
     Indication: SUICIDE ATTEMPT
     Dosage: UNDISCLOSED AMOUNT
     Route: 048
  2. PARACETAMOL [Suspect]
     Active Substance: ACETAMINOPHEN
     Indication: SUICIDE ATTEMPT
     Dosage: IN TOTAL?DRUG LAST PERIOD : 7 (HOURS)
     Route: 048

REACTIONS (6)
  - Unresponsive to stimuli [Recovered/Resolved]
  - Drug-induced liver injury [Recovered/Resolved]
  - Electrocardiogram QRS complex prolonged [Unknown]
  - Metabolic acidosis [Recovering/Resolving]
  - Intentional overdose [Recovered/Resolved]
  - Toxicity to various agents [Recovered/Resolved]
